FAERS Safety Report 8232971-X (Version None)
Quarter: 2012Q1

REPORT INFORMATION
  Report Type: 
  Country: None (occurrence: None)
  Receive Date: 20120326
  Receipt Date: 20111014
  Transmission Date: 20120608
  Serious: Yes (Other)
  Sender: FDA-Public Use
  Company Number: MY-AMGEN-MYSSP2011070062

PATIENT
  Sex: Female

DRUGS (4)
  1. NEUPOGEN [Suspect]
     Indication: CHEMOTHERAPY
     Dosage: 300 MUG, UNK
     Route: 058
     Dates: start: 20111010, end: 20111013
  2. CYCLOPHOSPHAMIDE [Concomitant]
     Indication: CHEMOTHERAPY
  3. FLUOROURACIL [Concomitant]
     Indication: CHEMOTHERAPY
  4. EPIRUBICIN HYDROCHLORIDE [Concomitant]
     Indication: CHEMOTHERAPY

REACTIONS (3)
  - COLD SWEAT [None]
  - HYPOTENSION [None]
  - LOSS OF CONSCIOUSNESS [None]
